FAERS Safety Report 16793042 (Version 2)
Quarter: 2019Q3

REPORT INFORMATION
  Report Type: Spontaneous
  Country: US (occurrence: US)
  Receive Date: 20190911
  Receipt Date: 20190917
  Transmission Date: 20191005
  Serious: No
  Sender: FDA-Public Use
  Company Number: US-AMGEN-USASP2019141686

PATIENT
  Age: 58 Year
  Sex: Female

DRUGS (2)
  1. NEULASTA [Suspect]
     Active Substance: PEGFILGRASTIM
     Dosage: 6 MILLIGRAM, (0.6 ML) ONE TIME DOSE
     Route: 058
     Dates: start: 20190828
  2. NEULASTA [Suspect]
     Active Substance: PEGFILGRASTIM
     Indication: BREAST CANCER
     Dosage: 6 MILLIGRAM, (0.6 ML) ONE TIME DOSE
     Route: 058
     Dates: start: 20190828

REACTIONS (2)
  - Device failure [Unknown]
  - Off label use [Unknown]

NARRATIVE: CASE EVENT DATE: 20190828
